FAERS Safety Report 15158486 (Version 1)
Quarter: 2018Q3

REPORT INFORMATION
  Report Type: Spontaneous
  Country: US (occurrence: US)
  Receive Date: 20180620
  Receipt Date: 20180620
  Transmission Date: 20181010
  Serious: Yes (Life-Threatening, Hospitalization)
  Sender: FDA-Public Use
  Company Number: None

PATIENT
  Age: 73 Year
  Sex: Female
  Weight: 113.4 kg

DRUGS (9)
  1. METOPROLOL. [Concomitant]
     Active Substance: METOPROLOL
  2. SALONPAS PADS [Concomitant]
  3. AMLODIPINE [Concomitant]
     Active Substance: AMLODIPINE BESYLATE
  4. KRYSTEXXA [Suspect]
     Active Substance: PEGLOTICASE
  5. ASPIRIN. [Concomitant]
     Active Substance: ASPIRIN
  6. COLCRYS [Concomitant]
     Active Substance: COLCHICINE
  7. PREDNISONE. [Concomitant]
     Active Substance: PREDNISONE
  8. CPAP MACHINE [Concomitant]
  9. FUROSEMIDE. [Concomitant]
     Active Substance: FUROSEMIDE

REACTIONS (6)
  - Headache [None]
  - Dyspnoea [None]
  - Dizziness [None]
  - Anaemia [None]
  - Hypertension [None]
  - Oxygen saturation decreased [None]

NARRATIVE: CASE EVENT DATE: 20180519
